FAERS Safety Report 8306106-9 (Version None)
Quarter: 2012Q2

REPORT INFORMATION
  Report Type: 
  Country: None (occurrence: None)
  Receive Date: 20120423
  Receipt Date: 20120419
  Transmission Date: 20120825
  Serious: Yes (Other)
  Sender: FDA-Public Use
  Company Number: US-PFIZER INC-2012070882

PATIENT
  Sex: Female
  Weight: 50.794 kg

DRUGS (16)
  1. ASCORBIC ACID [Concomitant]
     Dosage: 500 MG, (DAILY)
     Route: 048
  2. MULTIPLE VITAMIN [Concomitant]
     Dosage: (TAKE 1 TABLET BY MOUTH DAILY)
     Route: 048
  3. ZOLOFT [Suspect]
     Indication: DEPRESSION
     Dosage: 50 MG, 1X/DAY
     Route: 048
     Dates: start: 20111111, end: 20111229
  4. FIORICET [Concomitant]
     Indication: HEADACHE
     Dosage: TAKE 1 TABLET BY MOUTH DAILY AS NEEDED
     Route: 048
  5. PROZAC [Concomitant]
     Dosage: 20 MG, (TAKE 2 CAPSULES BY MOUTH DAILY)
     Route: 048
  6. VISTARIL [Suspect]
     Indication: DEPRESSION
     Dosage: 25 MG, AS NEEDED (TAKE 1 TO 2 CAPSULES BY MOUTH)
     Route: 048
  7. LUNESTA [Concomitant]
     Dosage: 2 MG, (TAKE BY MOUTH EVERY EVENING)
     Route: 048
  8. PROVIGIL [Concomitant]
     Dosage: 200 MG, 2X/DAY (TAKE 100 MG 2 TIMES DAILY)
     Route: 048
  9. VITAMIN E [Concomitant]
     Dosage: 400 IU, DAILY
     Route: 048
  10. ESGIC [Concomitant]
     Indication: HEADACHE
     Dosage: 1 TABLET DAILY
     Route: 048
  11. DESYREL [Concomitant]
     Dosage: 50 MG, (TAKE BY MOUTH NIGHTLY 25-50 MG: 1/2 TO 1 TABLET TWO HOURS PRIOR TO PLANNED BEDTIME)
     Route: 048
  12. VITAMIN B COMPLEX CAP [Concomitant]
     Dosage: (TAKE BY MOUTH DAILY)
     Route: 048
  13. BACLOFEN [Concomitant]
     Dosage: 20 MG, (TAKE 1 TABLET BY MOUTH TWO TIMES DAILY)
     Route: 048
  14. VITAMIN D [Concomitant]
     Dosage: TAKE BY MOUTH DAILY
     Route: 048
  15. FINGOLIMOD [Concomitant]
     Dosage: 0.5 MG, (TAKE BY MOUTH DAILY)
     Route: 048
  16. ZANAFLEX [Concomitant]
     Dosage: 2 MG, AS NEEDED (TAKE 1 TABLET BY MOUTH EVERY 6 HOURS)
     Route: 048

REACTIONS (3)
  - MULTIPLE SCLEROSIS [None]
  - WEIGHT INCREASED [None]
  - DEPRESSION [None]
